FAERS Safety Report 6921621-8 (Version None)
Quarter: 2010Q3

REPORT INFORMATION
  Report Type: 
  Country: None (occurrence: None)
  Receive Date: 20100812
  Receipt Date: 20100804
  Transmission Date: 20110219
  Serious: Yes (Other)
  Sender: FDA-Public Use
  Company Number: CA-MERCK-1004USA00755

PATIENT
  Age: 56 Year
  Sex: Female

DRUGS (2)
  1. FOSAMAX PLUS D [Suspect]
     Indication: OSTEOPOROSIS
     Route: 048
     Dates: start: 20100101
  2. FOSAMAX [Suspect]
     Route: 048
     Dates: start: 20070101, end: 20100101

REACTIONS (1)
  - OSTEONECROSIS [None]
